FAERS Safety Report 4795174-7 (Version None)
Quarter: 2005Q4

REPORT INFORMATION
  Report Type: 
  Country: None (occurrence: None)
  Receive Date: 20051006
  Receipt Date: 20050926
  Transmission Date: 20060501
  Serious: Yes (Hospitalization)
  Sender: FDA-Public Use
  Company Number: 2005AL003748

PATIENT
  Age: 36 Year
  Sex: Female

DRUGS (6)
  1. TRAMADOL HCL [Suspect]
     Dosage: 750 MG X1 PO
     Route: 048
  2. MIRTAZAPINE [Suspect]
     Indication: DEPRESSION
     Dosage: 30 MG QD
  3. GABAPENTIN [Concomitant]
  4. ZOLPIDEM [Concomitant]
  5. LEVOTHYROXINE [Concomitant]
  6. CONJUGATED ESTROGENS [Concomitant]

REACTIONS (11)
  - AMNESIA [None]
  - CONFUSIONAL STATE [None]
  - CONVULSION [None]
  - DRUG INTERACTION [None]
  - DYSPNOEA [None]
  - HEADACHE [None]
  - LETHARGY [None]
  - LOSS OF CONSCIOUSNESS [None]
  - MYDRIASIS [None]
  - OVERDOSE [None]
  - SEROTONIN SYNDROME [None]
